FAERS Safety Report 4440560-8 (Version None)
Quarter: 2004Q3

REPORT INFORMATION
  Report Type: 
  Country: None (occurrence: None)
  Receive Date: 20040903
  Receipt Date: 20040526
  Transmission Date: 20050211
  Serious: Yes (Hospitalization)
  Sender: FDA-Public Use
  Company Number: DE-ROCHE-368882

PATIENT
  Age: 64 Year
  Sex: Female
  Weight: 61 kg

DRUGS (14)
  1. DACLIZUMAB [Suspect]
     Route: 042
     Dates: start: 20040311, end: 20040311
  2. DACLIZUMAB [Suspect]
     Route: 042
     Dates: end: 20040506
  3. MYCOPHENOLATE MOFETIL [Suspect]
     Route: 048
     Dates: start: 20040311
  4. MYCOPHENOLATE MOFETIL [Suspect]
     Route: 048
     Dates: start: 20040312
  5. SIROLIMUS [Suspect]
     Route: 048
     Dates: start: 20040311
  6. SIROLIMUS [Suspect]
     Route: 048
     Dates: start: 20040314
  7. SIROLIMUS [Suspect]
     Route: 048
     Dates: start: 20040324
  8. SIROLIMUS [Suspect]
     Route: 048
     Dates: start: 20040415
  9. SIROLIMUS [Suspect]
     Route: 048
     Dates: start: 20040422
  10. SIROLIMUS [Suspect]
     Route: 048
     Dates: start: 20040423
  11. DECORTIN [Suspect]
     Route: 048
     Dates: start: 20040313
  12. DECORTIN [Suspect]
     Route: 048
     Dates: start: 20040327
  13. DECORTIN [Suspect]
     Route: 048
     Dates: start: 20040407
  14. DECORTIN [Suspect]
     Route: 048
     Dates: start: 20040427

REACTIONS (1)
  - URINARY TRACT INFECTION [None]
